FAERS Safety Report 9645854 (Version 2)
Quarter: 2014Q1

REPORT INFORMATION
  Report Type: Spontaneous
  Country: GB (occurrence: GB)
  Receive Date: 20131025
  Receipt Date: 20140203
  Transmission Date: 20141002
  Serious: Yes (Life-Threatening, Other)
  Sender: FDA-Public Use
  Company Number: PHHY2013GB116829

PATIENT
  Age: 80 Year
  Sex: Female

DRUGS (12)
  1. CO-AMOXICLAV [Suspect]
     Dosage: 1.2 G
     Route: 040
     Dates: start: 20130921, end: 20130921
  2. PEMETREXED [Concomitant]
  3. CARBOPLATIN [Concomitant]
  4. DOXAZOSIN [Concomitant]
  5. FUROSEMIDE [Concomitant]
  6. LACTULOSE [Concomitant]
  7. SENNA [Concomitant]
  8. PARACETAMOL [Concomitant]
  9. PILOCARPINE [Concomitant]
  10. TIMOLOL [Concomitant]
  11. BRINZOLAMIDE [Concomitant]
  12. FORMOTEROL [Concomitant]
     Route: 055

REACTIONS (3)
  - Cardiac arrest [Recovered/Resolved]
  - Anaphylactic reaction [Recovered/Resolved]
  - Rash [Unknown]
